FAERS Safety Report 7937752-X (Version None)
Quarter: 2011Q4

REPORT INFORMATION
  Report Type: 
  Country: None (occurrence: None)
  Receive Date: 20111123
  Receipt Date: 20111118
  Transmission Date: 20120403
  Serious: Yes (Hospitalization)
  Sender: FDA-Public Use
  Company Number: PHEH2011US009799

PATIENT

DRUGS (1)
  1. GLEEVEC [Suspect]

REACTIONS (4)
  - WHITE BLOOD CELL COUNT INCREASED [None]
  - PNEUMONIA [None]
  - FALL [None]
  - ABASIA [None]
